FAERS Safety Report 4530917-9 (Version None)
Quarter: 2004Q4

REPORT INFORMATION
  Report Type: 
  Country: None (occurrence: None)
  Receive Date: 20041215
  Receipt Date: 20041206
  Transmission Date: 20050328
  Serious: Yes (Disabling, Other)
  Sender: FDA-Public Use
  Company Number: 2004-10-0376

PATIENT
  Age: 51 Year
  Sex: Female

DRUGS (1)
  1. INTRON A [Suspect]
     Indication: MALIGNANT MELANOMA
     Dates: start: 20020101

REACTIONS (25)
  - AMNESIA [None]
  - CARCINOMA [None]
  - CONDITION AGGRAVATED [None]
  - CRYING [None]
  - DENTAL CARIES [None]
  - DIFFICULTY IN WALKING [None]
  - EMOTIONAL DISTRESS [None]
  - EPILEPSY [None]
  - FEAR [None]
  - FEELING ABNORMAL [None]
  - IMPRISONMENT [None]
  - INCOHERENT [None]
  - INSOMNIA [None]
  - LYMPHADENECTOMY [None]
  - MEDICATION ERROR [None]
  - MOTION SICKNESS [None]
  - NERVOUS SYSTEM DISORDER [None]
  - NIGHTMARE [None]
  - ROAD TRAFFIC ACCIDENT [None]
  - SEXUAL ASSAULT VICTIM [None]
  - SQUAMOUS CELL CARCINOMA [None]
  - SUICIDAL IDEATION [None]
  - TREMOR [None]
  - UNEVALUABLE EVENT [None]
  - VOMITING [None]
